FAERS Safety Report 4535618-9 (Version None)
Quarter: 2004Q4

REPORT INFORMATION
  Report Type: 
  Country: None (occurrence: None)
  Receive Date: 20041214
  Receipt Date: 20040722
  Transmission Date: 20050328
  Serious: Yes (Hospitalization)
  Sender: FDA-Public Use
  Company Number: USA040772908

PATIENT
  Age: 47 Year
  Sex: Male

DRUGS (3)
  1. CIALIS [Suspect]
     Indication: ERECTILE DYSFUNCTION
     Dosage: 20 MG
  2. DIOVAN              /SCH/                   (VALSARTAN) [Concomitant]
  3. ORAL HYPOGLYCEMIC AGENT [Concomitant]

REACTIONS (1)
  - SYNCOPE [None]
